FAERS Safety Report 5902032-0 (Version None)
Quarter: 2008Q3

REPORT INFORMATION
  Report Type: 
  Country: None (occurrence: None)
  Receive Date: 20080929
  Receipt Date: 20080918
  Transmission Date: 20090109
  Serious: Yes (Hospitalization)
  Sender: FDA-Public Use
  Company Number: CA-SANOFI-SYNTHELABO-A01200811588

PATIENT

DRUGS (5)
  1. COUMADIN [Concomitant]
     Indication: DRUG USE FOR UNKNOWN INDICATION
     Dosage: UNK
     Route: 065
  2. ASPIRIN [Concomitant]
     Indication: DRUG USE FOR UNKNOWN INDICATION
     Route: 065
  3. INNOHEP [Concomitant]
     Indication: DRUG USE FOR UNKNOWN INDICATION
     Dosage: UNK
     Route: 065
  4. PLAVIX [Suspect]
     Indication: ANGIOPLASTY
     Dosage: UNK
     Route: 048
  5. PLAVIX [Suspect]
     Indication: STENT PLACEMENT
     Dosage: UNK
     Route: 048

REACTIONS (3)
  - PULMONARY EMBOLISM [None]
  - RETROPERITONEAL HAEMORRHAGE [None]
  - SCIATIC NERVE INJURY [None]
